FAERS Safety Report 18236004 (Version 5)
Quarter: 2020Q4

REPORT INFORMATION
  Report Type: Report from Study
  Country: US (occurrence: US)
  Receive Date: 20200905
  Receipt Date: 20201027
  Transmission Date: 20210113
  Serious: Yes (Hospitalization, Other)
  Sender: FDA-Public Use
  Company Number: NVSC2020US244099

PATIENT
  Sex: Female

DRUGS (2)
  1. ENTRESTO [Suspect]
     Active Substance: SACUBITRIL\VALSARTAN
     Indication: PRODUCT USED FOR UNKNOWN INDICATION
     Dosage: 50 MG (24/26 MG), UNK
     Route: 048
  2. ENTRESTO [Suspect]
     Active Substance: SACUBITRIL\VALSARTAN
     Dosage: 100 MG (49/51 MG), BID
     Route: 048
     Dates: start: 202007

REACTIONS (9)
  - Dyspnoea [Not Recovered/Not Resolved]
  - Middle ear effusion [Unknown]
  - Throat tightness [Unknown]
  - Muscular weakness [Unknown]
  - Heart rate increased [Unknown]
  - Memory impairment [Unknown]
  - Decreased activity [Unknown]
  - Fluid overload [Unknown]
  - Oropharyngeal pain [Unknown]
